FAERS Safety Report 15051220 (Version 1)
Quarter: 2018Q2

REPORT INFORMATION
  Report Type: Spontaneous
  Country: GB (occurrence: GB)
  Receive Date: 20180622
  Receipt Date: 20180622
  Transmission Date: 20180711
  Serious: Yes (Other)
  Sender: FDA-Public Use
  Company Number: PHHY2018GB027738

PATIENT
  Age: 61 Year
  Sex: Male
  Weight: 74.38 kg

DRUGS (2)
  1. MOMETASONE [Suspect]
     Active Substance: MOMETASONE
     Indication: NASAL INFLAMMATION
     Route: 045
  2. CITALOPRAM [Concomitant]
     Active Substance: CITALOPRAM HYDROBROMIDE
     Indication: PRODUCT USED FOR UNKNOWN INDICATION
     Dosage: EFFECTIVE UNTIL THE INCIDENT.
     Route: 065

REACTIONS (4)
  - Anxiety [Recovered/Resolved with Sequelae]
  - Malaise [Unknown]
  - Epistaxis [Recovered/Resolved]
  - Feeling abnormal [Unknown]
